FAERS Safety Report 5645870-4 (Version None)
Quarter: 2008Q1

REPORT INFORMATION
  Report Type: 
  Country: None (occurrence: None)
  Receive Date: 20080229
  Receipt Date: 20080219
  Transmission Date: 20080703
  Serious: Yes (Other)
  Sender: FDA-Public Use
  Company Number: CA-PFIZER INC-2008013263

PATIENT
  Age: 60 Year
  Sex: Female

DRUGS (1)
  1. CHANTIX [Suspect]
     Route: 048

REACTIONS (4)
  - HEADACHE [None]
  - HYPOAESTHESIA [None]
  - HYPOTENSION [None]
  - PERIPHERAL VASCULAR DISORDER [None]
